FAERS Safety Report 23461033 (Version 1)
Quarter: 2024Q1

REPORT INFORMATION
  Report Type: Spontaneous
  Country: US (occurrence: None)
  Receive Date: 20240130
  Receipt Date: 20240130
  Transmission Date: 20240410
  Serious: Yes (Life-Threatening, Disabling, Other)
  Sender: FDA-Public Use
  Company Number: None

PATIENT
  Age: 54 Year
  Sex: Female
  Weight: 54 kg

DRUGS (3)
  1. MIRAPEX [Suspect]
     Active Substance: PRAMIPEXOLE DIHYDROCHLORIDE
     Indication: Parkinson^s disease
     Dates: start: 20160205, end: 20210602
  2. DEEP BRAIN STIMULATOR [Concomitant]
  3. LEVODOPA/CARBADOPA [Concomitant]

REACTIONS (7)
  - Obsessive-compulsive disorder [None]
  - Hallucination [None]
  - Suicidal ideation [None]
  - Product complaint [None]
  - Disability [None]
  - Divorced [None]
  - Economic problem [None]

NARRATIVE: CASE EVENT DATE: 20210106
